FAERS Safety Report 6208074-2 (Version None)
Quarter: 2009Q2

REPORT INFORMATION
  Report Type: 
  Country: None (occurrence: None)
  Receive Date: 20090529
  Receipt Date: 20090416
  Transmission Date: 20091009
  Serious: No
  Sender: FDA-Public Use
  Company Number: US-KINGPHARMUSA00001-K200900453

PATIENT
  Age: 82 Year
  Sex: Male
  Weight: 77.098 kg

DRUGS (8)
  1. FLECTOR [Suspect]
     Indication: PAIN IN EXTREMITY
     Dosage: 1 PATCH, BID
     Route: 061
     Dates: start: 20090401, end: 20090412
  2. KEPPRA [Concomitant]
     Indication: CONVULSION
     Dosage: UNK
     Route: 048
     Dates: start: 20040101
  3. DIGOXIN [Concomitant]
     Indication: ATRIAL FIBRILLATION
     Dosage: UNK
     Route: 048
     Dates: start: 20030101
  4. DIGOXIN [Concomitant]
     Indication: CEREBROVASCULAR ACCIDENT
  5. WARFARIN [Concomitant]
     Indication: ATRIAL FIBRILLATION
     Dosage: UNK
     Route: 048
  6. WARFARIN [Concomitant]
     Indication: CEREBROVASCULAR ACCIDENT
  7. METOPROLOL SUCCINATE [Concomitant]
     Indication: HYPERTENSION
     Dosage: UNK
     Route: 048
     Dates: start: 20030101
  8. LOVASTATIN [Concomitant]
     Dosage: UNK
     Route: 048
     Dates: start: 20030101

REACTIONS (4)
  - FORMICATION [None]
  - PAIN OF SKIN [None]
  - RASH PRURITIC [None]
  - SKIN BURNING SENSATION [None]
